FAERS Safety Report 8388477-0 (Version None)
Quarter: 2012Q2

REPORT INFORMATION
  Report Type: 
  Country: None (occurrence: None)
  Receive Date: 20120525
  Receipt Date: 20120521
  Transmission Date: 20120825
  Serious: Yes (Other)
  Sender: FDA-Public Use
  Company Number: PL-ROCHE-1068074

PATIENT
  Sex: Male
  Weight: 104 kg

DRUGS (7)
  1. METHYLPREDNISOLONE SODIUM SUCCINATE [Concomitant]
     Indication: RHEUMATOID ARTHRITIS
     Route: 048
     Dates: start: 20060101
  2. OLFEN [Concomitant]
     Indication: RHEUMATOID ARTHRITIS
     Route: 048
     Dates: start: 20110101
  3. MABTHERA [Suspect]
     Indication: RHEUMATOID ARTHRITIS
     Route: 042
     Dates: start: 20111019, end: 20120421
  4. BISOPROLOL FUMARATE [Concomitant]
     Indication: ARRHYTHMIA
     Route: 048
     Dates: start: 20060101
  5. BISOPROLOL FUMARATE [Concomitant]
     Indication: HYPERTENSION
  6. POLPRAZOL [Concomitant]
     Route: 048
     Dates: start: 20060101
  7. METHOTREXATE [Concomitant]
     Indication: RHEUMATOID ARTHRITIS
     Route: 048
     Dates: start: 20080310

REACTIONS (3)
  - TACHYCARDIA [None]
  - ANXIETY DISORDER [None]
  - NERVOUSNESS [None]
